FAERS Safety Report 4680998-7 (Version None)
Quarter: 2005Q2

REPORT INFORMATION
  Report Type: 
  Country: None (occurrence: None)
  Receive Date: 20050603
  Receipt Date: 20050526
  Transmission Date: 20051028
  Serious: Yes (Hospitalization)
  Sender: FDA-Public Use
  Company Number: PHHO2005JP08521

PATIENT
  Age: 72 Year
  Sex: Female
  Weight: 46 kg

DRUGS (7)
  1. ITOROL [Concomitant]
     Indication: ANGINA PECTORIS
     Dosage: 40 MG
     Route: 048
     Dates: start: 20000706
  2. BAYMYCARD [Concomitant]
     Indication: ANGINA PECTORIS
     Dosage: 10 MG
     Route: 048
     Dates: start: 20000706
  3. SIGMART [Concomitant]
     Indication: ANGINA PECTORIS
     Dosage: 15 MG
     Route: 048
     Dates: start: 20000706
  4. ALINAMIN [Concomitant]
     Indication: NEUROPATHY PERIPHERAL
     Dosage: 75 MG
     Route: 048
     Dates: start: 20000706
  5. BAYASPIRIN [Concomitant]
     Indication: PROPHYLAXIS
     Dosage: 100 MG
     Route: 048
     Dates: start: 20000706
  6. WARFARIN [Concomitant]
     Indication: PROPHYLAXIS
     Dosage: 2 MG
     Dates: start: 20000706
  7. DIOVAN [Suspect]
     Indication: HYPERTENSION
     Dosage: 40 MG, BID
     Route: 048
     Dates: start: 20030624

REACTIONS (3)
  - ASTHENIA [None]
  - LOSS OF CONSCIOUSNESS [None]
  - TRANSIENT ISCHAEMIC ATTACK [None]
